FAERS Safety Report 5612998-4 (Version None)
Quarter: 2008Q1

REPORT INFORMATION
  Report Type: 
  Country: None (occurrence: None)
  Receive Date: 20080204
  Receipt Date: 20080122
  Transmission Date: 20080703
  Serious: Yes (Other)
  Sender: FDA-Public Use
  Company Number: GB-RANBAXY-2007RR-05142

PATIENT

DRUGS (1)
  1. ISOTRETINOIN [Suspect]
     Indication: ACNE
     Route: 048

REACTIONS (5)
  - ALANINE AMINOTRANSFERASE INCREASED [None]
  - BLOOD ALKALINE PHOSPHATASE INCREASED [None]
  - BLOOD CHOLESTEROL INCREASED [None]
  - INTRACRANIAL PRESSURE INCREASED [None]
  - PAPILLOEDEMA [None]
